FAERS Safety Report 22531987 (Version 1)
Quarter: 2023Q2

REPORT INFORMATION
  Report Type: Other
  Country: None (occurrence: HU)
  Receive Date: 20230607
  Receipt Date: 20230607
  Transmission Date: 20230722
  Serious: Yes (Life-Threatening, Hospitalization, Other)
  Sender: FDA-Public Use
  Company Number: HU-B.Braun Medical Inc.-2142431

PATIENT
  Age: 85 Year
  Sex: Female

DRUGS (7)
  1. POTASSIUM CHLORIDE [Suspect]
     Active Substance: POTASSIUM CHLORIDE
     Indication: Mineral supplementation
  2. PERINDOPRIL [Suspect]
     Active Substance: PERINDOPRIL
  3. AMLODIPINE [Suspect]
     Active Substance: AMLODIPINE BESYLATE
  4. FUROSEMIDE [Suspect]
     Active Substance: FUROSEMIDE
  5. COUMARIN [Suspect]
     Active Substance: COUMARIN
  6. UNSPECIFIED INGREDIENT [Suspect]
     Active Substance: UNSPECIFIED INGREDIENT
  7. UNSPECIFIED INGREDIENT [Suspect]
     Active Substance: UNSPECIFIED INGREDIENT

REACTIONS (3)
  - Renal impairment [Unknown]
  - Hyponatraemia [Unknown]
  - Drug ineffective [Unknown]
